FAERS Safety Report 25385863 (Version 2)
Quarter: 2025Q2

REPORT INFORMATION
  Report Type: Report from Study
  Country: US (occurrence: US)
  Receive Date: 20250602
  Receipt Date: 20250630
  Transmission Date: 20250717
  Serious: No
  Sender: BIOVITRUM
  Company Number: US-BIOVITRUM-2025-US-006984

PATIENT
  Age: 86 Year
  Sex: Female

DRUGS (1)
  1. KINERET [Suspect]
     Active Substance: ANAKINRA
     Indication: Rheumatoid arthritis
     Route: 058
     Dates: start: 20250425

REACTIONS (6)
  - Hypoacusis [Unknown]
  - Product dose omission issue [Unknown]
  - Injection site pain [Unknown]
  - Drug effect less than expected [Unknown]
  - Gait disturbance [Unknown]
  - Arthralgia [Unknown]
